FAERS Safety Report 21764848 (Version 1)
Quarter: 2022Q4

REPORT INFORMATION
  Report Type: Report from Study
  Country: US (occurrence: US)
  Receive Date: 20221222
  Receipt Date: 20221222
  Transmission Date: 20230113
  Serious: No
  Sender: FDA-Public Use
  Company Number: US-ABBVIE-4241784

PATIENT
  Age: 20 Year
  Sex: Male
  Weight: 70 kg

DRUGS (1)
  1. HUMIRA [Suspect]
     Active Substance: ADALIMUMAB
     Indication: Colitis ulcerative
     Dosage: CITRATE FREE, STRENGTH:40MG
     Route: 058
     Dates: start: 2020

REACTIONS (2)
  - Gastritis [Not Recovered/Not Resolved]
  - Gastric mucosa erythema [Not Recovered/Not Resolved]

NARRATIVE: CASE EVENT DATE: 20220601
